FAERS Safety Report 6007664-X (Version None)
Quarter: 2008Q4

REPORT INFORMATION
  Report Type: 
  Country: None (occurrence: None)
  Receive Date: 20081217
  Receipt Date: 20080401
  Transmission Date: 20090506
  Serious: No
  Sender: FDA-Public Use
  Company Number: US-ASTRAZENECA-2008UW06510

PATIENT
  Sex: Female

DRUGS (6)
  1. CRESTOR [Suspect]
     Indication: BLOOD CHOLESTEROL INCREASED
     Route: 048
  2. CARDIAZEM [Concomitant]
  3. BENICAR HCT [Concomitant]
  4. ASPIRIN [Concomitant]
  5. PROTONIX [Concomitant]
  6. VITAMINS [Concomitant]

REACTIONS (2)
  - ANXIETY [None]
  - EXTRASYSTOLES [None]
